FAERS Safety Report 21437307 (Version 2)
Quarter: 2024Q2

REPORT INFORMATION
  Report Type: Spontaneous
  Country: US (occurrence: US)
  Receive Date: 20221010
  Receipt Date: 20240419
  Transmission Date: 20240716
  Serious: Yes (Other)
  Sender: FDA-Public Use
  Company Number: US-ABBVIE-4146400

PATIENT
  Sex: Male

DRUGS (2)
  1. LUPRON [Suspect]
     Active Substance: LEUPROLIDE ACETATE
     Indication: Product used for unknown indication
     Route: 065
  2. XTANDI [Suspect]
     Active Substance: ENZALUTAMIDE
     Indication: Product used for unknown indication
     Route: 065

REACTIONS (7)
  - Metastases to bone [Unknown]
  - Unevaluable event [Unknown]
  - Sleep disorder [Unknown]
  - Brain fog [Unknown]
  - Sleep apnoea syndrome [Unknown]
  - Muscle atrophy [Unknown]
  - Fatigue [Unknown]

NARRATIVE: CASE EVENT DATE: 20211101
